FAERS Safety Report 17747900 (Version 1)
Quarter: 2020Q2

REPORT INFORMATION
  Report Type: Report from Study
  Country: BR (occurrence: BR)
  Receive Date: 20200505
  Receipt Date: 20200505
  Transmission Date: 20200714
  Serious: Yes (Other)
  Sender: FDA-Public Use
  Company Number: NVSC2020BR034801

PATIENT
  Age: 44 Year
  Sex: Female

DRUGS (1)
  1. COSENTYX [Suspect]
     Active Substance: SECUKINUMAB
     Indication: PSORIASIS
     Dosage: 300 MG, QMO
     Route: 058
     Dates: start: 20190930

REACTIONS (8)
  - Anxiety [Recovering/Resolving]
  - Discomfort [Recovering/Resolving]
  - Pain [Recovering/Resolving]
  - Dysuria [Recovering/Resolving]
  - Polyuria [Recovering/Resolving]
  - Immunodeficiency [Unknown]
  - Candida infection [Recovered/Resolved]
  - Cystitis [Recovering/Resolving]

NARRATIVE: CASE EVENT DATE: 201911
